FAERS Safety Report 17014862 (Version 2)
Quarter: 2021Q3

REPORT INFORMATION
  Report Type: Spontaneous
  Country: DK (occurrence: DK)
  Receive Date: 20191111
  Receipt Date: 20210818
  Transmission Date: 20211014
  Serious: Yes (Death, Other)
  Sender: FDA-Public Use
  Company Number: DK-GLAXOSMITHKLINE-DK2019201619

PATIENT
  Age: 83 Year
  Sex: Male

DRUGS (1)
  1. ZINACEF [Suspect]
     Active Substance: CEFUROXIME SODIUM
     Indication: INFECTION
     Dosage: 4500 MG, QD  (STRENGTH: 1.5 G)
     Route: 042
     Dates: start: 20191012, end: 20191012

REACTIONS (5)
  - Foaming at mouth [Unknown]
  - Cardiac arrest [Fatal]
  - Cross sensitivity reaction [Unknown]
  - Taste disorder [Unknown]
  - Anaphylactic reaction [Fatal]

NARRATIVE: CASE EVENT DATE: 20191012
